FAERS Safety Report 20752912 (Version 1)
Quarter: 2022Q2

REPORT INFORMATION
  Report Type: Spontaneous
  Country: US (occurrence: None)
  Receive Date: 20220426
  Receipt Date: 20220426
  Transmission Date: 20220720
  Serious: No
  Sender: FDA-Public Use
  Company Number: US-ROCHE-2923412

PATIENT
  Sex: Male

DRUGS (1)
  1. ESBRIET [Suspect]
     Active Substance: PIRFENIDONE
     Indication: Idiopathic pulmonary fibrosis
     Dosage: TAKE 1 TABLET BY MOUTH 3 TIMES A DAY FOR 7 DAYS, 2 TABLETS BY MOUTH 3 TIMES A DAY FOR 7 DAYS, THEN T
     Route: 048
     Dates: start: 202108

REACTIONS (6)
  - Loss of personal independence in daily activities [Unknown]
  - Hearing disability [Unknown]
  - Somnolence [Unknown]
  - Dizziness [Unknown]
  - Fall [Unknown]
  - Insomnia [Unknown]
